FAERS Safety Report 6841612-5 (Version None)
Quarter: 2010Q3

REPORT INFORMATION
  Report Type: 
  Country: None (occurrence: None)
  Receive Date: 20100714
  Receipt Date: 20070709
  Transmission Date: 20110219
  Serious: No
  Sender: FDA-Public Use
  Company Number: US-PFIZER INC-2007057945

PATIENT
  Sex: Female
  Weight: 77.1 kg

DRUGS (2)
  1. CHANTIX [Suspect]
     Indication: SMOKING CESSATION THERAPY
     Route: 048
     Dates: start: 20070708
  2. ZOLOFT [Concomitant]
     Route: 048

REACTIONS (4)
  - HEADACHE [None]
  - NERVOUSNESS [None]
  - TREMOR [None]
  - VISION BLURRED [None]
